FAERS Safety Report 5036606-9 (Version None)
Quarter: 2006Q2

REPORT INFORMATION
  Report Type: 
  Country: None (occurrence: None)
  Receive Date: 20060531
  Receipt Date: 20060401
  Transmission Date: 20061013
  Serious: No
  Sender: FDA-Public Use
  Company Number: PHEH2006US04426

PATIENT
  Age: 46 Year
  Sex: Female

DRUGS (2)
  1. EXJADE [Suspect]
  2. ANTIBIOTICS (NO INGREDIENTS/SUBSTANCES) [Concomitant]

REACTIONS (2)
  - RASH [None]
  - SKIN BURNING SENSATION [None]
